FAERS Safety Report 9101919 (Version 1)
Quarter: 2013Q1

REPORT INFORMATION
  Report Type: Spontaneous
  Country: US (occurrence: US)
  Receive Date: 20130218
  Receipt Date: 20130218
  Transmission Date: 20140127
  Serious: Yes (Death)
  Sender: FDA-Public Use
  Company Number: US-NOVOPROD-370908

PATIENT
  Age: 30 Year
  Sex: Male

DRUGS (1)
  1. NOVOSEVEN RT [Suspect]
     Indication: PRODUCT USED FOR UNKNOWN INDICATION
     Route: 042

REACTIONS (1)
  - Haemorrhage intracranial [Fatal]
